FAERS Safety Report 22989254 (Version 2)
Quarter: 2023Q4

REPORT INFORMATION
  Report Type: Spontaneous
  Country: NL (occurrence: None)
  Receive Date: 20230927
  Receipt Date: 20231027
  Transmission Date: 20240109
  Serious: Yes (Other)
  Sender: FDA-Public Use
  Company Number: 2023A216267

PATIENT
  Age: 53 Year
  Sex: Male
  Weight: 86 kg

DRUGS (2)
  1. DAPAGLIFLOZIN [Suspect]
     Active Substance: DAPAGLIFLOZIN
     Indication: Renal impairment
     Dosage: 1 PIECE ONCE A DAY
     Dates: start: 20230329, end: 20230905
  2. DAPAGLIFLOZIN [Suspect]
     Active Substance: DAPAGLIFLOZIN
     Indication: Diabetes mellitus
     Dosage: 1 PIECE ONCE A DAY
     Dates: start: 20230329, end: 20230905

REACTIONS (2)
  - Phimosis [Recovering/Resolving]
  - Penile discharge [Recovering/Resolving]
